FAERS Safety Report 16358885 (Version 1)
Quarter: 2019Q2

REPORT INFORMATION
  Report Type: Spontaneous
  Country: BR (occurrence: BR)
  Receive Date: 20190527
  Receipt Date: 20190527
  Transmission Date: 20190711
  Serious: Yes (Hospitalization, Other)
  Sender: FDA-Public Use
  Company Number: BR-UCBSA-2019021578

PATIENT
  Age: 3 Year
  Sex: Male
  Weight: 19 kg

DRUGS (13)
  1. FRISIUM [Concomitant]
     Active Substance: CLOBAZAM
     Dosage: 5 MILLIGRAM, ONCE DAILY (QD)
     Dates: start: 201610
  2. GARDENAL [Concomitant]
     Active Substance: PHENOBARBITAL
     Indication: EPILEPSY
     Dosage: 100 MILLIGRAM, ONCE DAILY (QD)
  3. LOSEC [Concomitant]
     Active Substance: OMEPRAZOLE
     Indication: GASTRIC DISORDER
     Dosage: 10 MILLIGRAM, ONCE DAILY (QD)
  4. DIPYRONE [Concomitant]
     Active Substance: DIPYRONE
     Indication: SALMONELLOSIS
     Dosage: UNK
  5. AMPICILLIN [Concomitant]
     Active Substance: AMPICILLIN
     Indication: SALMONELLOSIS
     Dosage: UNK
  6. VIMPAT [Suspect]
     Active Substance: LACOSAMIDE
     Indication: EPILEPSY
     Dosage: 2.5 ML IN MORNING AND 5 ML AT NIGHT
     Dates: start: 20190501
  7. SIMETHICONE (DIMETHICONE) [Concomitant]
     Active Substance: DIMETHICONE
     Indication: GASTRIC DISORDER
     Dosage: UNK, 3X/DAY (TID)
  8. KEPPRA [Suspect]
     Active Substance: LEVETIRACETAM
     Indication: EPILEPSY
     Dosage: 100 MG/150 ML
     Route: 048
     Dates: start: 2016, end: 201610
  9. SABRIL [Concomitant]
     Active Substance: VIGABATRIN
     Indication: EPILEPSY
     Dosage: 750 MILLIGRAM, 3X/DAY (TID)
     Dates: start: 201610
  10. FRISIUM [Concomitant]
     Active Substance: CLOBAZAM
     Indication: EPILEPSY
     Dosage: 5 MILLIGRAM, 2X/DAY (BID)
  11. ALIVIUM [Concomitant]
     Active Substance: IBUPROFEN
     Indication: SALMONELLOSIS
     Dosage: UNK
  12. TRILEPTAL [Concomitant]
     Active Substance: OXCARBAZEPINE
     Indication: EPILEPSY
     Dosage: 4 MILLILITER, 2X/DAY (BID)
  13. MEROPENEM. [Concomitant]
     Active Substance: MEROPENEM
     Indication: SALMONELLOSIS
     Dosage: UNK

REACTIONS (6)
  - Pneumonia aspiration [Unknown]
  - Pneumonia [Unknown]
  - Off label use [Unknown]
  - Decreased immune responsiveness [Unknown]
  - Salmonellosis [Unknown]
  - Dysphagia [Unknown]

NARRATIVE: CASE EVENT DATE: 2017
